FAERS Safety Report 7603031-3 (Version None)
Quarter: 2011Q3

REPORT INFORMATION
  Report Type: 
  Country: None (occurrence: None)
  Receive Date: 20110701
  Receipt Date: 20110622
  Transmission Date: 20111222
  Serious: Yes (Life-Threatening)
  Sender: FDA-Public Use
  Company Number: 100001052

PATIENT
  Age: 25 Year
  Sex: Male

DRUGS (2)
  1. MEMANTINE [Suspect]
     Indication: AMNESIA
     Dosage: 10 MG (10 MG, 1 IN 1 D)
  2. DONEPEZIL HCL [Suspect]
     Indication: AMNESIA
     Dosage: 10 MG (10 MG, 1 IN 1 D)
     Dates: start: 20020101

REACTIONS (2)
  - DISEASE RECURRENCE [None]
  - VENTRICULAR FIBRILLATION [None]
